FAERS Safety Report 7712502-0 (Version None)
Quarter: 2011Q3

REPORT INFORMATION
  Report Type: 
  Country: None (occurrence: None)
  Receive Date: 20110822
  Receipt Date: 20110815
  Transmission Date: 20111222
  Serious: Yes (Other)
  Sender: FDA-Public Use
  Company Number: 2011SP038498

PATIENT
  Age: 6 Year
  Sex: Male

DRUGS (2)
  1. TEMOZOLOMIDE [Suspect]
     Indication: GLIOMA
  2. IMATINIB MESYLATE [Suspect]
     Indication: GLIOMA

REACTIONS (3)
  - PRECOCIOUS PUBERTY [None]
  - VENTRICULAR HYPOKINESIA [None]
  - CARDIOTOXICITY [None]
